FAERS Safety Report 12573077 (Version 1)
Quarter: 2016Q3

REPORT INFORMATION
  Report Type: Spontaneous
  Country: US (occurrence: US)
  Receive Date: 20160720
  Receipt Date: 20160720
  Transmission Date: 20161109
  Serious: Yes (Life-Threatening, Hospitalization, Other)
  Sender: FDA-Public Use
  Company Number: US-ZYDUS-011604

PATIENT
  Age: 64 Year
  Sex: Male

DRUGS (2)
  1. LEVETIRACETAM. [Suspect]
     Active Substance: LEVETIRACETAM
     Indication: GENERALISED TONIC-CLONIC SEIZURE
     Route: 065
  2. LAMOTRIGINE. [Suspect]
     Active Substance: LAMOTRIGINE
     Indication: GENERALISED TONIC-CLONIC SEIZURE
     Route: 065

REACTIONS (15)
  - Pyrexia [Recovered/Resolved]
  - Rash maculo-papular [Recovered/Resolved]
  - Hepatic enzyme increased [Unknown]
  - Ocular hyperaemia [Recovered/Resolved]
  - Skin exfoliation [Recovered/Resolved with Sequelae]
  - Visual acuity tests abnormal [Recovered/Resolved]
  - Conjunctivitis [Recovered/Resolved with Sequelae]
  - Hyperbilirubinaemia [Unknown]
  - Aphthous ulcer [Unknown]
  - Eyelid oedema [Recovered/Resolved]
  - Vision blurred [Recovered/Resolved]
  - Thrombocytopenia [Unknown]
  - Photophobia [Recovered/Resolved]
  - Drug reaction with eosinophilia and systemic symptoms [Unknown]
  - Foreign body sensation in eyes [Recovered/Resolved]
